FAERS Safety Report 4562413-7 (Version None)
Quarter: 2005Q1

REPORT INFORMATION
  Report Type: 
  Country: None (occurrence: None)
  Receive Date: 20050127
  Receipt Date: 20041118
  Transmission Date: 20050727
  Serious: No
  Sender: FDA-Public Use
  Company Number: US-BRISTOL-MYERS SQUIBB COMPANY-12769816

PATIENT
  Age: 47 Year
  Sex: Female

DRUGS (4)
  1. KENALOG [Suspect]
     Indication: PAIN IN EXTREMITY
     Route: 051
     Dates: start: 20040901, end: 20040901
  2. MULTIVITAMIN [Concomitant]
  3. SOY [Concomitant]
  4. BLACK COHOSH [Concomitant]

REACTIONS (2)
  - MUSCLE SPASMS [None]
  - RASH PRURITIC [None]
